FAERS Safety Report 20582346 (Version 2)
Quarter: 2022Q2

REPORT INFORMATION
  Report Type: Spontaneous
  Country: US (occurrence: None)
  Receive Date: 20220311
  Receipt Date: 20220408
  Transmission Date: 20220721
  Serious: No
  Sender: FDA-Public Use
  Company Number: 2022A084213

PATIENT
  Age: 27386 Day
  Sex: Male
  Weight: 88.5 kg

DRUGS (1)
  1. BYDUREON BCISE [Suspect]
     Active Substance: EXENATIDE
     Indication: Type 2 diabetes mellitus
     Dosage: 2.0MG UNKNOWN
     Route: 058

REACTIONS (8)
  - Injection site nodule [Not Recovered/Not Resolved]
  - Injection site bruising [Recovered/Resolved]
  - Blood glucose abnormal [Unknown]
  - Frustration tolerance decreased [Unknown]
  - Anger [Unknown]
  - Device leakage [Unknown]
  - Drug dose omission by device [Unknown]
  - Needle issue [Unknown]

NARRATIVE: CASE EVENT DATE: 20220119
